FAERS Safety Report 23468040 (Version 1)
Quarter: 2024Q1

REPORT INFORMATION
  Report Type: Spontaneous
  Country: ZA (occurrence: ZA)
  Receive Date: 20240201
  Receipt Date: 20240201
  Transmission Date: 20240409
  Serious: Yes (Death)
  Sender: FDA-Public Use
  Company Number: ZA-ABBOTT-2024A-1377019

PATIENT
  Age: 51 Year
  Sex: Female

DRUGS (4)
  1. CREON [Suspect]
     Active Substance: PANCRELIPASE AMYLASE\PANCRELIPASE LIPASE\PANCRELIPASE PROTEASE
     Indication: Product used for unknown indication
     Dosage: CREON 2500 (PANCREATIN) 300 MG?TAKE ONE CAPSULE THREE TIMES AD DAY
     Route: 048
  2. LASIX [Concomitant]
     Active Substance: FUROSEMIDE
     Indication: Hypertension
     Dosage: LASIX (FUROSEMID) 20 MG TAKE ?ONE TABLET THREE TIMES AD DAY
  3. PROCHLORPERAZINE MALEATE [Concomitant]
     Active Substance: PROCHLORPERAZINE MALEATE
     Indication: Nausea
     Dosage: MITIL (PROCHLORPERAZINE) 5  MG TAKE ?ONE TABLET THREE TIMES ADAY
  4. RIVAROXABAN [Concomitant]
     Active Substance: RIVAROXABAN
     Indication: Thrombosis
     Dosage: IXAROLA (RIVAROXABAN) 20 MG TAKE ONE TABLET DAILY

REACTIONS (1)
  - Neoplasm malignant [Fatal]
